FAERS Safety Report 7104612-6 (Version None)
Quarter: 2010Q4

REPORT INFORMATION
  Report Type: 
  Country: None (occurrence: None)
  Receive Date: 20101109
  Receipt Date: 20101026
  Transmission Date: 20110411
  Serious: Yes (Hospitalization, Other)
  Sender: FDA-Public Use
  Company Number: 2010AP002272

PATIENT
  Age: 80 Year
  Sex: Female

DRUGS (2)
  1. ALENDRONATE SODIUM [Suspect]
     Dosage: 70 MG; QW
  2. FERROUS SULFATE TAB [Suspect]
     Dosage: 300 MG; TID

REACTIONS (14)
  - ABDOMINAL PAIN UPPER [None]
  - BLOOD PRESSURE SYSTOLIC INCREASED [None]
  - CHEST PAIN [None]
  - DEEP VEIN THROMBOSIS [None]
  - DYSPHAGIA [None]
  - HAEMATOCRIT DECREASED [None]
  - HAEMATOMA [None]
  - HAEMOGLOBIN DECREASED [None]
  - MUCOUS MEMBRANE DISORDER [None]
  - NAUSEA [None]
  - OESOPHAGEAL INJURY [None]
  - OESOPHAGEAL MASS [None]
  - THROMBOSIS [None]
  - VOMITING [None]
